FAERS Safety Report 18366735 (Version 2)
Quarter: 2020Q4

REPORT INFORMATION
  Report Type: Spontaneous
  Country: US (occurrence: PR)
  Receive Date: 20201009
  Receipt Date: 20201103
  Transmission Date: 20210114
  Serious: Yes (Hospitalization, Other)
  Sender: FDA-Public Use
  Company Number: US-BAYER-2020-212727

PATIENT
  Age: 74 Year
  Sex: Male

DRUGS (1)
  1. STIVARGA [Suspect]
     Active Substance: REGORAFENIB
     Indication: COLON CANCER
     Dosage: 160 MG DAILY FOR 21 DAYS AND REST 7 DAYS
     Route: 048
     Dates: start: 20200910

REACTIONS (6)
  - Urticaria [None]
  - Abdominal pain upper [None]
  - Hospitalisation [None]
  - Decreased appetite [None]
  - Fluid retention [None]
  - Asthenia [None]
